FAERS Safety Report 24280350 (Version 1)
Quarter: 2024Q3

REPORT INFORMATION
  Report Type: Report from Study
  Country: CO (occurrence: CO)
  Receive Date: 20240904
  Receipt Date: 20240904
  Transmission Date: 20241017
  Serious: Yes (Death, Hospitalization, Other)
  Sender: UCB
  Company Number: CO-UCBSA-2024044907

PATIENT
  Age: 81 Year
  Sex: Male

DRUGS (1)
  1. CERTOLIZUMAB PEGOL [Suspect]
     Active Substance: CERTOLIZUMAB PEGOL
     Indication: Rheumatoid arthritis
     Dosage: 400 MILLIGRAM, EV 30 DAYS (SOLUTION FOR INJECTION)
     Dates: start: 20230309, end: 20240726

REACTIONS (3)
  - Cerebral infarction [Fatal]
  - Infarction [Unknown]
  - Off label use [Unknown]

NARRATIVE: CASE EVENT DATE: 20230309
